FAERS Safety Report 13353267 (Version 3)
Quarter: 2017Q3

REPORT INFORMATION
  Report Type: Spontaneous
  Country: US (occurrence: US)
  Receive Date: 20170321
  Receipt Date: 20170808
  Transmission Date: 20171127
  Serious: Yes (Hospitalization)
  Sender: FDA-Public Use
  Company Number: US-ASTRAZENECA-2017SE27634

PATIENT
  Age: 981 Month
  Sex: Female
  Weight: 70.3 kg

DRUGS (2)
  1. SYMBICORT [Suspect]
     Active Substance: BUDESONIDE\FORMOTEROL FUMARATE DIHYDRATE
     Indication: ASTHMA
     Dosage: 160/4.5MCG 1 PUFF, TWO TIMES A DAY
     Route: 055
     Dates: start: 201404
  2. SYMBICORT [Suspect]
     Active Substance: BUDESONIDE\FORMOTEROL FUMARATE DIHYDRATE
     Indication: ASTHMA
     Dosage: 160/4.5MCG 2 PUFF, ONCE DAILY
     Route: 055

REACTIONS (8)
  - Wrong technique in product usage process [Unknown]
  - Off label use [Unknown]
  - Device malfunction [Unknown]
  - Product use issue [Unknown]
  - Memory impairment [Unknown]
  - Intentional product misuse [Unknown]
  - Pneumonia [Unknown]
  - Candida infection [Recovered/Resolved]

NARRATIVE: CASE EVENT DATE: 201404
